FAERS Safety Report 9144431 (Version 1)
Quarter: 2013Q1

REPORT INFORMATION
  Report Type: Spontaneous
  Country: PR (occurrence: PR)
  Receive Date: 20130306
  Receipt Date: 20130306
  Transmission Date: 20140127
  Serious: Yes (Other)
  Sender: FDA-Public Use
  Company Number: PR-MYLANLABS-2013S1004817

PATIENT
  Age: 47 Year
  Sex: Male

DRUGS (1)
  1. GABAPENTIN [Suspect]
     Indication: NEURALGIA

REACTIONS (7)
  - Convulsion [Recovering/Resolving]
  - Amnesia [Not Recovered/Not Resolved]
  - Disorientation [Not Recovered/Not Resolved]
  - Depression [Not Recovered/Not Resolved]
  - Abnormal behaviour [Not Recovered/Not Resolved]
  - Somnambulism [Not Recovered/Not Resolved]
  - Inappropriate schedule of drug administration [Not Recovered/Not Resolved]
